FAERS Safety Report 8041182-2 (Version None)
Quarter: 2012Q1

REPORT INFORMATION
  Report Type: 
  Country: None (occurrence: None)
  Receive Date: 20120109
  Receipt Date: 20111227
  Transmission Date: 20120608
  Serious: Yes (Other)
  Sender: FDA-Public Use
  Company Number: 2012P1000011

PATIENT
  Age: 67 Year
  Sex: Female

DRUGS (3)
  1. CLOPIDOGREL [Concomitant]
  2. ASPIRIN [Concomitant]
  3. HEPARIN [Suspect]
     Indication: ANTICOAGULANT THERAPY
     Dosage: 5000 IU

REACTIONS (5)
  - HEPARIN-INDUCED THROMBOCYTOPENIA [None]
  - PULMONARY EMBOLISM [None]
  - DEEP VEIN THROMBOSIS [None]
  - PERIPHERAL ISCHAEMIA [None]
  - GRAFT THROMBOSIS [None]
